FAERS Safety Report 7685768-3 (Version None)
Quarter: 2011Q3

REPORT INFORMATION
  Report Type: 
  Country: None (occurrence: None)
  Receive Date: 20110815
  Receipt Date: 20110815
  Transmission Date: 20111222
  Serious: Yes (Life-Threatening, Disabling, Other)
  Sender: FDA-Public Use
  Company Number: None

PATIENT
  Age: 36 Year
  Sex: Male
  Weight: 63.502 kg

DRUGS (1)
  1. GADOLINIUM USED FOR MRI [Suspect]

REACTIONS (3)
  - ABASIA [None]
  - DYSSTASIA [None]
  - BACK PAIN [None]
